FAERS Safety Report 22870425 (Version 2)
Quarter: 2024Q2

REPORT INFORMATION
  Report Type: Report from Study
  Country: JP (occurrence: JP)
  Receive Date: 20230827
  Receipt Date: 20240528
  Transmission Date: 20240716
  Serious: Yes (Other)
  Sender: FDA-Public Use
  Company Number: JP-TAKEDA-2023TJP010234

PATIENT
  Age: 70 Year
  Sex: Male

DRUGS (2)
  1. VONICOG ALFA [Suspect]
     Active Substance: VONICOG ALFA
     Indication: Haemorrhagic diathesis
     Dosage: 2600 INTERNATIONAL UNIT
     Route: 042
     Dates: start: 202305, end: 202305
  2. VONICOG ALFA [Suspect]
     Active Substance: VONICOG ALFA
     Dosage: 3900 INTERNATIONAL UNIT, QD
     Route: 042
     Dates: start: 20230531, end: 20230604

REACTIONS (2)
  - No adverse event [Unknown]
  - Drug ineffective [Unknown]
